FAERS Safety Report 7524683-2 (Version None)
Quarter: 2011Q2

REPORT INFORMATION
  Report Type: 
  Country: None (occurrence: None)
  Receive Date: 20110606
  Receipt Date: 20110530
  Transmission Date: 20111010
  Serious: Yes (Other)
  Sender: FDA-Public Use
  Company Number: DE-GENZYME-FLUD-1001207

PATIENT
  Age: 8 Month
  Sex: Male

DRUGS (7)
  1. FLUDARA [Suspect]
     Indication: CORD BLOOD TRANSPLANT THERAPY
  2. FLUDARA [Suspect]
     Indication: HISTOLOGY
     Dosage: 40 MG/M2, QDX4 ON DAY -7 TO DAY -4
     Route: 065
  3. BUSULFAN [Suspect]
     Indication: CORD BLOOD TRANSPLANT THERAPY
  4. CYCLOPHOSPHAMIDE [Suspect]
     Indication: CORD BLOOD TRANSPLANT THERAPY
  5. CYCLOPHOSPHAMIDE [Suspect]
     Indication: HISTOLOGY
     Dosage: 60 MG/KG, QDX2 ON DAY -3 AND -2
     Route: 065
  6. BUSULFAN [Suspect]
     Indication: HISTOLOGY
     Dosage: 5 MG/KG, QDX4 ON DAY -11 TO DAY -8
     Route: 065
  7. CYCLOSPORINE [Concomitant]
     Indication: PROPHYLAXIS AGAINST GRAFT VERSUS HOST DISEASE

REACTIONS (3)
  - ADENOVIRAL UPPER RESPIRATORY INFECTION [None]
  - ACUTE GRAFT VERSUS HOST DISEASE IN SKIN [None]
  - HERPES VIRUS INFECTION [None]
